FAERS Safety Report 6471060-1 (Version None)
Quarter: 2009Q4

REPORT INFORMATION
  Report Type: 
  Country: None (occurrence: None)
  Receive Date: 20091203
  Receipt Date: 20081201
  Transmission Date: 20100525
  Serious: No
  Sender: FDA-Public Use
  Company Number: US-AMGEN-KDL321453

PATIENT
  Sex: Female

DRUGS (15)
  1. ENBREL [Suspect]
     Indication: PSORIASIS
     Route: 058
     Dates: start: 20070914
  2. LASIX [Concomitant]
     Route: 048
  3. IRON [Concomitant]
  4. ADVAIR DISKUS 100/50 [Concomitant]
  5. RHINOCORT [Concomitant]
  6. PROCRIT [Concomitant]
  7. CATAPRES [Concomitant]
  8. LABETALOL HCL [Concomitant]
     Route: 048
  9. CARDIZEM [Concomitant]
     Route: 048
  10. TRIAMCINOLONE ACETONIDE [Concomitant]
  11. LIDEX [Concomitant]
  12. PATANOL [Concomitant]
  13. HYDROCORTISONE ACETATE [Concomitant]
  14. PROCRIT [Concomitant]
  15. UNSPECIFIED ASTHMA MEDICATION [Concomitant]

REACTIONS (1)
  - PSORIASIS [None]
